FAERS Safety Report 19756773 (Version 1)
Quarter: 2021Q3

REPORT INFORMATION
  Report Type: Spontaneous
  Country: US (occurrence: US)
  Receive Date: 20210827
  Receipt Date: 20210827
  Transmission Date: 20211014
  Serious: Yes (Other)
  Sender: FDA-Public Use
  Company Number: US-MYLANLABS-2021M1056707

PATIENT
  Age: 7 Decade
  Sex: Female

DRUGS (11)
  1. HYDROCODONE [Suspect]
     Active Substance: HYDROCODONE
     Indication: BURNING MOUTH SYNDROME
     Dosage: 80 MILLIGRAM, QD
     Route: 065
  2. LEVOTHYROXINE. [Concomitant]
     Active Substance: LEVOTHYROXINE
     Indication: HYPOTHYROIDISM
     Dosage: 175 MICROGRAM, QD
     Route: 065
  3. IBUPROFEN. [Suspect]
     Active Substance: IBUPROFEN
     Indication: BURNING MOUTH SYNDROME
     Dosage: 600 TO 800 MG AS NEEDED/AS NECESSARY
     Route: 065
  4. PREGABALIN. [Suspect]
     Active Substance: PREGABALIN
     Indication: BURNING MOUTH SYNDROME
     Dosage: UNK
     Route: 065
  5. DEXTROPROPOXYPHENE/ PARACETAMOL [Suspect]
     Active Substance: ACETAMINOPHEN\PROPOXYPHENE
     Indication: BURNING MOUTH SYNDROME
     Dosage: UNK
     Route: 065
  6. VITAMIN D                          /00107901/ [Concomitant]
     Active Substance: ERGOCALCIFEROL
     Indication: VITAMIN SUPPLEMENTATION
     Dosage: UNK
     Route: 065
  7. CARBAMAZEPINE. [Suspect]
     Active Substance: CARBAMAZEPINE
     Indication: BURNING MOUTH SYNDROME
     Dosage: UNK
     Route: 065
  8. CLONAZEPAM. [Concomitant]
     Active Substance: CLONAZEPAM
     Indication: ANXIETY
     Dosage: 2 MILLIGRAM, BID AS NEEDED
     Route: 065
  9. GABAPENTIN. [Suspect]
     Active Substance: GABAPENTIN
     Indication: BURNING MOUTH SYNDROME
     Dosage: UNK
     Route: 065
  10. THIOCTIC ACID [Suspect]
     Active Substance: .ALPHA.-LIPOIC ACID
     Indication: BURNING MOUTH SYNDROME
     Dosage: UNK
     Route: 065
  11. ZOLPIDEM [Concomitant]
     Active Substance: ZOLPIDEM TARTRATE
     Indication: DEPRESSION
     Dosage: 10 MG NIGHTLY AS NEEDED
     Route: 065

REACTIONS (3)
  - Drug ineffective [Unknown]
  - Off label use [Unknown]
  - Adverse event [Unknown]
